FAERS Safety Report 7929569-7 (Version None)
Quarter: 2011Q4

REPORT INFORMATION
  Report Type: 
  Country: None (occurrence: None)
  Receive Date: 20111121
  Receipt Date: 20111110
  Transmission Date: 20120403
  Serious: Yes (Life-Threatening, Other)
  Sender: FDA-Public Use
  Company Number: FR-JNJFOC-20111010232

PATIENT
  Age: 12 Year
  Sex: Female
  Weight: 60 kg

DRUGS (4)
  1. POLARAMINE [Concomitant]
     Indication: PREMEDICATION
  2. REMICADE [Suspect]
     Route: 042
     Dates: start: 20111020
  3. REMICADE [Suspect]
     Indication: CROHN'S DISEASE
     Route: 042
     Dates: start: 20110608
  4. HYDROCORTISONE HEMISUCCINATE [Concomitant]
     Indication: PREMEDICATION
     Route: 042

REACTIONS (2)
  - INFUSION RELATED REACTION [None]
  - ANAPHYLACTIC SHOCK [None]
